FAERS Safety Report 7007737-9 (Version None)
Quarter: 2010Q3

REPORT INFORMATION
  Report Type: 
  Country: None (occurrence: None)
  Receive Date: 20100920
  Receipt Date: 20100913
  Transmission Date: 20110219
  Serious: Yes (Hospitalization)
  Sender: FDA-Public Use
  Company Number: 2010SP048840

PATIENT
  Age: 29 Year
  Sex: Female

DRUGS (7)
  1. CELESTONE [Suspect]
     Indication: PRODUCT USED FOR UNKNOWN INDICATION
     Dates: start: 20100523
  2. NIFEDIPINE [Suspect]
     Indication: TOCOLYSIS
     Dosage: 1 DF; QD; PO
     Route: 048
     Dates: start: 20100524
  3. TRACTOCILE (ATOSIBAN) [Suspect]
     Indication: TOCOLYSIS
     Dates: start: 20100524
  4. ERYTHROMYCIN [Suspect]
     Indication: INFECTION PROPHYLAXIS
     Dosage: 3 GM; QD;
     Dates: start: 20100522
  5. EPHEDRINE (OTHER MANUFACTURER) (EPHEDRINE) [Suspect]
     Indication: PRODUCT USED FOR UNKNOWN INDICATION
     Dates: start: 20100524
  6. PHENYLEPHRINE HCL [Suspect]
     Indication: PRODUCT USED FOR UNKNOWN INDICATION
     Dates: start: 20100524
  7. VOLUVEN [Suspect]
     Indication: PRODUCT USED FOR UNKNOWN INDICATION
     Dates: start: 20100524

REACTIONS (14)
  - BLOOD PRESSURE DECREASED [None]
  - BRAIN NATRIURETIC PEPTIDE INCREASED [None]
  - CARDIAC FAILURE [None]
  - CARDIOMYOPATHY [None]
  - CHEST PAIN [None]
  - DRUG EXPOSURE DURING PREGNANCY [None]
  - DYSPNOEA [None]
  - ESCHERICHIA TEST POSITIVE [None]
  - PLEURAL EFFUSION [None]
  - PREMATURE LABOUR [None]
  - SEPSIS [None]
  - STREPTOCOCCUS TEST POSITIVE [None]
  - TACHYCARDIA [None]
  - TROPONIN INCREASED [None]
